FAERS Safety Report 4318294-X (Version None)
Quarter: 2004Q1

REPORT INFORMATION
  Report Type: 
  Country: None (occurrence: None)
  Receive Date: 20040315
  Receipt Date: 20031121
  Transmission Date: 20041129
  Serious: No
  Sender: FDA-Public Use
  Company Number: 2003187751US

PATIENT
  Age: 35 Year
  Sex: Male

DRUGS (3)
  1. BEXTRA [Suspect]
     Indication: ARTHRALGIA
     Dosage: 10 MG
  2. DIABETES MEDICATION [Concomitant]
  3. MEDICATION FOR KIDNEYS [Concomitant]

REACTIONS (3)
  - DIARRHOEA [None]
  - PRODUCTIVE COUGH [None]
  - SALIVA ALTERED [None]
